FAERS Safety Report 6558314-5 (Version None)
Quarter: 2010Q1

REPORT INFORMATION
  Report Type: 
  Country: None (occurrence: None)
  Receive Date: 20100129
  Receipt Date: 20100116
  Transmission Date: 20100710
  Serious: Yes (Other)
  Sender: FDA-Public Use
  Company Number: US-BAYER-201013107GPV

PATIENT
  Age: 62 Year
  Sex: Male

DRUGS (11)
  1. SORAFENIB [Suspect]
     Indication: HEPATIC NEOPLASM MALIGNANT
     Dates: start: 20080301, end: 20080307
  2. SORAFENIB [Suspect]
     Dates: start: 20080308, end: 20080314
  3. SORAFENIB [Suspect]
     Dosage: TOTAL DAILY DOSE: 800 MG
     Dates: start: 20080322, end: 20080626
  4. SORAFENIB [Suspect]
     Dates: start: 20080315, end: 20080321
  5. SORAFENIB [Suspect]
     Dates: start: 20080729, end: 20080808
  6. SANDOSTATIN [Concomitant]
     Indication: HEPATIC NEOPLASM MALIGNANT
     Route: 058
  7. SANDOSTATIN LAR [Concomitant]
     Indication: HEPATIC NEOPLASM MALIGNANT
     Dosage: EVERY 4 WEEKS FOR 5 CYCLES
     Route: 030
  8. PANTOPRALOLE [Concomitant]
     Indication: DRUG USE FOR UNKNOWN INDICATION
  9. SPIRONOLACTONE [Concomitant]
     Indication: DRUG USE FOR UNKNOWN INDICATION
  10. FUROSEMIDE [Concomitant]
     Indication: DRUG USE FOR UNKNOWN INDICATION
  11. MORPHINE [Concomitant]
     Indication: DRUG USE FOR UNKNOWN INDICATION
     Route: 042

REACTIONS (6)
  - DIARRHOEA [None]
  - EPISTAXIS [None]
  - GINGIVAL BLEEDING [None]
  - HEPATIC FAILURE [None]
  - RASH MACULAR [None]
  - THROMBOCYTOPENIA [None]
